FAERS Safety Report 5408220-4 (Version None)
Quarter: 2007Q3

REPORT INFORMATION
  Report Type: 
  Country: None (occurrence: None)
  Receive Date: 20070806
  Receipt Date: 20070806
  Transmission Date: 20080115
  Serious: Yes (Life-Threatening, Hospitalization)
  Sender: FDA-Public Use
  Company Number: None

PATIENT
  Age: 47 Year
  Sex: Male

DRUGS (1)
  1. MORPHINE [Suspect]
     Indication: SURGERY
     Dosage: 10MG ONCE IM
     Route: 030
     Dates: start: 20070507, end: 20070507

REACTIONS (3)
  - POST PROCEDURAL COMPLICATION [None]
  - RESPIRATORY ARREST [None]
  - UNRESPONSIVE TO STIMULI [None]
